FAERS Safety Report 4745996-3 (Version None)
Quarter: 2005Q3

REPORT INFORMATION
  Report Type: 
  Country: None (occurrence: None)
  Receive Date: 20050816
  Receipt Date: 20050511
  Transmission Date: 20060218
  Serious: Yes (Hospitalization, Disabling)
  Sender: FDA-Public Use
  Company Number: US-MERCK-0505USA01658

PATIENT
  Age: 73 Year
  Sex: Male
  Weight: 107 kg

DRUGS (4)
  1. VIOXX [Suspect]
     Indication: ARTHRITIS
     Route: 048
     Dates: start: 20020101, end: 20040101
  2. TRAMADOL HYDROCHLORIDE [Concomitant]
     Route: 065
  3. POTASSIUM (UNSPECIFIED) [Concomitant]
     Route: 065
  4. ZANTAC [Concomitant]
     Route: 065

REACTIONS (12)
  - BLOOD CHOLESTEROL INCREASED [None]
  - BLOOD PRESSURE INCREASED [None]
  - BLOOD TRIGLYCERIDES INCREASED [None]
  - CORONARY ARTERY OCCLUSION [None]
  - DYSPEPSIA [None]
  - DYSPNOEA [None]
  - FLUID OVERLOAD [None]
  - HEART RATE IRREGULAR [None]
  - MYOCARDIAL INFARCTION [None]
  - POLYTRAUMATISM [None]
  - THROMBOSIS [None]
  - THYROID DISORDER [None]
